FAERS Safety Report 9542511 (Version 1)
Quarter: 2013Q2

REPORT INFORMATION
  Report Type: Spontaneous
  Country: US (occurrence: None)
  Receive Date: 20130524
  Receipt Date: 20130524
  Transmission Date: 20140414
  Serious: No
  Sender: FDA-Public Use
  Company Number: PHEH2012US025330

PATIENT
  Sex: Female

DRUGS (9)
  1. GILENYA (FINGOLIMOD) CAPSULE, 0.5MG [Suspect]
     Route: 048
  2. CYMBALTA (DULOXETINE HYDROCHLORIDE) [Concomitant]
  3. TOVIAZ (FESOTERODINE FUMARATE) [Concomitant]
  4. LYRICA (PREGABALIN) [Concomitant]
  5. SYNTHROID (LEVOTHYROXINE SODIUM) [Concomitant]
  6. IRON /03292501/ (ASCORBIC ACID, BETAINE HYDROCHLORIDE, COPPER, CYANOCOBALAMIN, FOLIC ACID, IRON, MANGANESE, NICOTINAMIDE, PYRIDOXINE HYDROCHLORIDE, RIBOFLAVIN, THIAMINE HYDROCHLORIDE) [Concomitant]
  7. VITAMIN D (ERGOCALCIFEROL) [Concomitant]
  8. ABILIFY (ARIPIPRAZOLE) [Concomitant]
  9. OXYCONTIN (OXYCODONE HYDROCHLORIDE) [Concomitant]

REACTIONS (4)
  - Hypoaesthesia [None]
  - Muscle spasticity [None]
  - Vision blurred [None]
  - Paraesthesia [None]
